FAERS Safety Report 8492127-2 (Version None)
Quarter: 2012Q3

REPORT INFORMATION
  Report Type: 
  Country: None (occurrence: None)
  Receive Date: 20120706
  Receipt Date: 20120705
  Transmission Date: 20120928
  Serious: Yes (Hospitalization)
  Sender: FDA-Public Use
  Company Number: US-ROCHE-1013756

PATIENT
  Sex: Male
  Weight: 81 kg

DRUGS (11)
  1. DIPHENHYDRAMINE HCL [Concomitant]
     Indication: PROPHYLAXIS
     Dosage: PRE INFUSION
     Dates: start: 20110816
  2. MABTHERA [Suspect]
     Route: 042
     Dates: start: 20110913, end: 20111018
  3. MABTHERA [Suspect]
     Indication: CHRONIC LYMPHOCYTIC LEUKAEMIA
     Route: 042
     Dates: start: 20110816, end: 20110816
  4. OLMESARTAN MEDOXOMIL [Concomitant]
     Indication: HYPERTENSION
     Dates: start: 20110101
  5. BENDAMUSTINE [Suspect]
     Indication: CHRONIC LYMPHOCYTIC LEUKAEMIA
     Route: 042
     Dates: start: 20110817, end: 20111019
  6. SIMVASTATIN [Concomitant]
     Indication: HYPERLIPIDAEMIA
     Dates: start: 20110331
  7. NAVITOCLAX [Suspect]
     Indication: CHRONIC LYMPHOCYTIC LEUKAEMIA
     Route: 048
     Dates: start: 20110817, end: 20111018
  8. ACETAMINOPHEN [Concomitant]
     Indication: PROPHYLAXIS
     Dosage: PRE-INFUSION
     Dates: start: 20110816
  9. TOPIRAMATE [Concomitant]
     Indication: MIGRAINE
  10. SUMATRIPTAN [Concomitant]
     Indication: MIGRAINE
     Dates: start: 20110331
  11. ALLOPURINOL [Concomitant]
     Indication: PROPHYLAXIS
     Dates: start: 20110815

REACTIONS (1)
  - INTERSTITIAL LUNG DISEASE [None]
